FAERS Safety Report 11647552 (Version 1)
Quarter: 2015Q4

REPORT INFORMATION
  Report Type: Spontaneous
  Country: US (occurrence: None)
  Receive Date: 20151020
  Receipt Date: 20151020
  Transmission Date: 20160304
  Serious: No
  Sender: FDA-Public Use
  Company Number: None

PATIENT
  Sex: Female
  Weight: 68.04 kg

DRUGS (8)
  1. CYABBENZAPRINS NUVRING [Concomitant]
  2. BUPROPION. [Concomitant]
     Active Substance: BUPROPION
  3. NASOCORT [Concomitant]
     Active Substance: BUDESONIDE
  4. TOPAMAX [Suspect]
     Active Substance: TOPIRAMATE
     Indication: HEADACHE
     Route: 048
     Dates: start: 20140226
  5. SUMATRIPTAN. [Concomitant]
     Active Substance: SUMATRIPTAN
  6. SUBINGUAL B12 [Concomitant]
  7. TOPIRAMATE. [Concomitant]
     Active Substance: TOPIRAMATE
  8. ALLEGRA-D [Concomitant]
     Active Substance: FEXOFENADINE\PSEUDOEPHEDRINE

REACTIONS (1)
  - Headache [None]
